FAERS Safety Report 10758872 (Version 1)
Quarter: 2015Q1

REPORT INFORMATION
  Report Type: Spontaneous
  Country: US (occurrence: None)
  Receive Date: 20150202
  Receipt Date: 20150202
  Transmission Date: 20150721
  Serious: Yes (Disabling, Other)
  Sender: FDA-Public Use
  Company Number: None

PATIENT
  Age: 14 Year
  Sex: Male
  Weight: 88.45 kg

DRUGS (1)
  1. FLUOXETINE [Suspect]
     Active Substance: FLUOXETINE\FLUOXETINE HYDROCHLORIDE
     Indication: GENERALISED ANXIETY DISORDER
     Dosage: ONE PILL; ONCE DAILY
     Route: 048
     Dates: start: 20140825, end: 20140911

REACTIONS (10)
  - Anxiety [None]
  - Educational problem [None]
  - Nausea [None]
  - Headache [None]
  - General physical health deterioration [None]
  - Vomiting [None]
  - Suicidal ideation [None]
  - Migraine [None]
  - Hallucination, visual [None]
  - Hallucination, auditory [None]

NARRATIVE: CASE EVENT DATE: 20140831
